FAERS Safety Report 10450919 (Version 2)
Quarter: 2014Q3

REPORT INFORMATION
  Report Type: Report from Study
  Country: TR (occurrence: TR)
  Receive Date: 20140912
  Receipt Date: 20140922
  Transmission Date: 20150326
  Serious: Yes (Hospitalization)
  Sender: FDA-Public Use
  Company Number: TR-US-EMD SERONO, INC.-7318924

PATIENT
  Sex: Female
  Weight: 68 kg

DRUGS (6)
  1. PROPYCIL [Concomitant]
     Indication: HYPERTHYROIDISM
     Dosage: 3-50 MG ONCE DAILY
  2. ACEMETACIN [Concomitant]
     Active Substance: ACEMETACIN
     Indication: ARTHRALGIA
     Dosage: 1-90 MG TWICE DAILY
  3. BUSPON                             /00803202/ [Concomitant]
     Indication: ANXIETY
     Dosage: 4-5 MG TWICE DAILY
  4. PREDNISOLONE. [Concomitant]
     Active Substance: PREDNISOLONE
     Indication: RHEUMATOID ARTHRITIS
     Dosage: 2-5 MG ONCE DAILY
  5. PAROXETINE [Concomitant]
     Active Substance: PAROXETINE\PAROXETINE HYDROCHLORIDE
     Indication: ANTIDEPRESSANT THERAPY
     Dosage: 5-10 MG ONCE DAILY
  6. REBIF [Suspect]
     Active Substance: INTERFERON BETA-1A
     Indication: MULTIPLE SCLEROSIS
     Dates: start: 201305

REACTIONS (3)
  - Urinary tract infection [Recovered/Resolved]
  - Rash [Recovered/Resolved]
  - Hypersensitivity [Recovered/Resolved]

NARRATIVE: CASE EVENT DATE: 20140902
